FAERS Safety Report 24071929 (Version 2)
Quarter: 2024Q3

REPORT INFORMATION
  Report Type: Report from Study
  Country: CA (occurrence: CA)
  Receive Date: 20240710
  Receipt Date: 20240716
  Transmission Date: 20241017
  Serious: Yes (Other)
  Sender: LEO PHARM
  Company Number: CA-LEO Pharma-371704

PATIENT
  Age: 53 Year
  Sex: Female

DRUGS (6)
  1. ADBRY [Suspect]
     Active Substance: TRALOKINUMAB-LDRM
     Indication: Dermatitis atopic
     Dosage: LOADING DOSE: FORMAT: 150 MG/ML PRE-FILLED SYRINGE;
     Route: 058
     Dates: start: 20221130
  2. ADBRY [Suspect]
     Active Substance: TRALOKINUMAB-LDRM
     Indication: Dermatitis atopic
     Dosage: LOADING DOSE: FORMAT: 150 MG/ML PRE-FILLED SYRINGE;
     Route: 058
     Dates: start: 20221130
  3. ADBRY [Suspect]
     Active Substance: TRALOKINUMAB-LDRM
     Indication: Dermatitis atopic
     Dosage: MAINTENANCE DOSE:  FORMAT: 150 MG/ML PRE-FILLED SYRINGE;
     Route: 058
  4. ADBRY [Suspect]
     Active Substance: TRALOKINUMAB-LDRM
     Indication: Dermatitis atopic
     Dosage: MAINTENANCE DOSE:  FORMAT: 150 MG/ML PRE-FILLED SYRINGE;
     Route: 058
  5. LYRICA [Concomitant]
     Active Substance: PREGABALIN
     Indication: Product used for unknown indication
     Dosage: DOSE, FREQUENCY: ASKED BUT UNKNOWN; STOP DATE: ONGOING
  6. SYMBICORT [Concomitant]
     Active Substance: BUDESONIDE\FORMOTEROL FUMARATE DIHYDRATE
     Indication: Product used for unknown indication
     Dosage: DOSE, FREQUENCY: ASKED BUT UNKNOWN; STOP DATE: ONGOING

REACTIONS (2)
  - Balance disorder [Unknown]
  - Dizziness [Recovering/Resolving]

NARRATIVE: CASE EVENT DATE: 20240601
